FAERS Safety Report 13076538 (Version 1)
Quarter: 2016Q4

REPORT INFORMATION
  Report Type: Spontaneous
  Country: MZ (occurrence: MZ)
  Receive Date: 20161230
  Receipt Date: 20161230
  Transmission Date: 20170207
  Serious: Yes (Other)
  Sender: FDA-Public Use
  Company Number: MZ-JNJFOC-20161225220

PATIENT
  Age: 42 Year
  Sex: Male

DRUGS (3)
  1. LEVOFLOXACIN. [Suspect]
     Active Substance: LEVOFLOXACIN
     Indication: HERPES ZOSTER
     Route: 065
  2. VALACYCLOVIR [Suspect]
     Active Substance: VALACYCLOVIR HYDROCHLORIDE
     Indication: HERPES ZOSTER
     Route: 065
  3. PREDNISOLONE. [Suspect]
     Active Substance: PREDNISOLONE
     Indication: HERPES ZOSTER
     Route: 065

REACTIONS (6)
  - Purulent discharge [Unknown]
  - Drug ineffective for unapproved indication [Unknown]
  - Facial paralysis [Unknown]
  - Face oedema [Unknown]
  - Product use issue [Unknown]
  - Off label use [Unknown]
